FAERS Safety Report 11245223 (Version 1)
Quarter: 2015Q3

REPORT INFORMATION
  Report Type: Spontaneous
  Country: AU (occurrence: AU)
  Receive Date: 20150707
  Receipt Date: 20150707
  Transmission Date: 20151125
  Serious: Yes (Other)
  Sender: FDA-Public Use
  Company Number: AU-BAXTER-2015BAX034489

PATIENT
  Age: 25 Year
  Sex: Female
  Weight: 61 kg

DRUGS (14)
  1. BAXTER SODIUM CHLORIDE 0.9% IRRIGATION SOLUTION BOTTLE AHF7975/7123/71 [Suspect]
     Active Substance: SODIUM CHLORIDE
     Indication: IRRIGATION THERAPY
     Route: 042
  2. PROPOFOL. [Suspect]
     Active Substance: PROPOFOL
     Indication: SEDATIVE THERAPY
     Route: 042
  3. PROPOFOL. [Suspect]
     Active Substance: PROPOFOL
     Indication: ENDOTRACHEAL INTUBATION
     Route: 040
  4. PROPOFOL. [Suspect]
     Active Substance: PROPOFOL
     Route: 042
  5. SUXAMETHONIUM [Suspect]
     Active Substance: SUCCINYLCHOLINE
     Route: 042
  6. FRUSEMIDE [Suspect]
     Active Substance: FUROSEMIDE
     Indication: PULMONARY OEDEMA
     Route: 042
  7. BAXTER SODIUM CHLORIDE 0.9% IRRIGATION SOLUTION BOTTLE AHF7975/7123/71 [Suspect]
     Active Substance: SODIUM CHLORIDE
     Route: 042
  8. MIDAZOLAM [Suspect]
     Active Substance: MIDAZOLAM\MIDAZOLAM HYDROCHLORIDE
     Indication: SEDATIVE THERAPY
     Route: 042
  9. INDOMETHACIN. [Suspect]
     Active Substance: INDOMETHACIN
     Indication: TOCOLYSIS
     Route: 054
  10. BUPIVACAINE WITH ADRENALINE [Suspect]
     Active Substance: BUPIVACAINE HYDROCHLORIDE\EPINEPHRINE BITARTRATE
     Indication: INFILTRATION ANAESTHESIA
     Route: 065
  11. BAXTER SEVOFLURANE 250ML INHALATION LIQUID BOTTLE - 106647 [Suspect]
     Active Substance: SEVOFLURANE
     Indication: GENERAL ANAESTHESIA
     Dosage: MINIMUM ALVEOLAR CONCENTRATION VALUE OF 1.0
     Route: 055
  12. BAXTER COMPOUND SODIUM LACTATE (HARTMANN^S SOLUTION) 1000ML INJECTION [Suspect]
     Active Substance: CALCIUM CHLORIDE\POTASSIUM CHLORIDE\SODIUM CHLORIDE\SODIUM LACTATE
     Indication: DIURETIC THERAPY
     Route: 042
  13. FENTANYL. [Suspect]
     Active Substance: FENTANYL
     Indication: SEDATIVE THERAPY
     Route: 042
  14. SUXAMETHONIUM [Suspect]
     Active Substance: SUCCINYLCHOLINE
     Indication: ENDOTRACHEAL INTUBATION
     Route: 042

REACTIONS (3)
  - Exposure during pregnancy [Recovered/Resolved]
  - Pulmonary oedema [Recovered/Resolved]
  - Foetal death [Recovered/Resolved]
